FAERS Safety Report 16661747 (Version 1)
Quarter: 2019Q3

REPORT INFORMATION
  Report Type: Spontaneous
  Country: JP (occurrence: JP)
  Receive Date: 20190802
  Receipt Date: 20190802
  Transmission Date: 20191004
  Serious: Yes (Other)
  Sender: FDA-Public Use
  Company Number: JP-PFIZER INC-2019320348

PATIENT
  Age: 83 Year
  Sex: Female

DRUGS (4)
  1. INFLIXIMAB [Concomitant]
     Active Substance: INFLIXIMAB
  2. METHOTREXATE SODIUM. [Suspect]
     Active Substance: METHOTREXATE SODIUM
  3. ADALIMUMAB [Concomitant]
     Active Substance: ADALIMUMAB
  4. FLAGYL [Concomitant]
     Active Substance: METRONIDAZOLE\METRONIDAZOLE HYDROCHLORIDE

REACTIONS (8)
  - Pyrexia [Unknown]
  - Pseudomembranous colitis [Unknown]
  - Anaemia [Unknown]
  - Rectal lesion [Unknown]
  - Respiratory failure [Unknown]
  - Platelet count decreased [Unknown]
  - Agranulocytosis [Unknown]
  - Lung disorder [Unknown]
